FAERS Safety Report 7389449-5 (Version None)
Quarter: 2011Q2

REPORT INFORMATION
  Report Type: 
  Country: None (occurrence: None)
  Receive Date: 20110401
  Receipt Date: 20110321
  Transmission Date: 20111010
  Serious: Yes (Hospitalization)
  Sender: FDA-Public Use
  Company Number: LT-SANOFI-AVENTIS-2011SA017510

PATIENT
  Age: 65 Year
  Sex: Female

DRUGS (1)
  1. MULTAQ [Suspect]
     Route: 048
     Dates: start: 20101101, end: 20110322

REACTIONS (1)
  - ARRHYTHMIA [None]
